FAERS Safety Report 7951981-0 (Version None)
Quarter: 2011Q4

REPORT INFORMATION
  Report Type: 
  Country: None (occurrence: None)
  Receive Date: 20111130
  Receipt Date: 20111130
  Transmission Date: 20120403
  Serious: Yes (Life-Threatening, Hospitalization)
  Sender: FDA-Public Use
  Company Number: None

PATIENT
  Age: 55 Year
  Sex: Male
  Weight: 104.5 kg

DRUGS (1)
  1. GADOBENATE [Suspect]
     Indication: SCAN WITH CONTRAST
     Dosage: 13 ML ONCE IV
     Route: 042
     Dates: start: 20110614, end: 20110614

REACTIONS (9)
  - MYALGIA [None]
  - UNRESPONSIVE TO STIMULI [None]
  - MUSCLE RIGIDITY [None]
  - ERYTHEMA [None]
  - LOCAL SWELLING [None]
  - PALLOR [None]
  - PULSELESS ELECTRICAL ACTIVITY [None]
  - CARDIO-RESPIRATORY ARREST [None]
  - ANAPHYLACTIC REACTION [None]
